FAERS Safety Report 19976907 (Version 2)
Quarter: 2023Q1

REPORT INFORMATION
  Report Type: Report from Study
  Country: PT (occurrence: PT)
  Receive Date: 20211020
  Receipt Date: 20230202
  Transmission Date: 20230418
  Serious: Yes (Hospitalization, Other)
  Sender: FDA-Public Use
  Company Number: PT-TAKEDA-PT201935736

PATIENT
  Age: 12 Year
  Sex: Male

DRUGS (12)
  1. IDURSULFASE [Suspect]
     Active Substance: IDURSULFASE
     Indication: Mucopolysaccharidosis II
     Dosage: 0.5 MILLIGRAM/KILOGRAM, 1X/WEEK
     Route: 042
     Dates: start: 20070711, end: 20140215
  2. CLEMASTINE [Concomitant]
     Active Substance: CLEMASTINE
     Indication: Prophylaxis
     Dosage: UNK
     Route: 042
     Dates: start: 20071017, end: 20140214
  3. METHYLPREDNISOLONE [Concomitant]
     Active Substance: METHYLPREDNISOLONE
     Indication: Prophylaxis
     Dosage: UNK
     Route: 042
     Dates: start: 20071017, end: 20140214
  4. RISPERIDONE [Concomitant]
     Active Substance: RISPERIDONE
     Indication: Product used for unknown indication
     Dosage: UNK
     Route: 048
     Dates: start: 20080603, end: 20130927
  5. PULMICORT TURBUHALER [Concomitant]
     Active Substance: BUDESONIDE
     Indication: Nasal obstruction
     Dosage: UNK
     Route: 045
     Dates: start: 20080926, end: 20130703
  6. CEFTRIAXONE [Concomitant]
     Active Substance: CEFTRIAXONE
     Indication: Arthritis bacterial
     Dosage: UNK
     Route: 042
     Dates: start: 20100708, end: 20100722
  7. FLUCLOXACILLIN [Concomitant]
     Active Substance: FLUCLOXACILLIN
     Indication: Arthritis bacterial
     Dosage: UNK
     Route: 042
     Dates: start: 20100708, end: 20100729
  8. MOTILIUM [Concomitant]
     Active Substance: DOMPERIDONE
     Indication: Constipation
     Dosage: UNK
     Route: 048
     Dates: start: 20101116, end: 20130905
  9. LACTULOSE [Concomitant]
     Active Substance: LACTULOSE
     Indication: Constipation
     Dosage: UNK
     Route: 065
     Dates: start: 20101116, end: 20120104
  10. CEFAZOLIN SODIUM [Concomitant]
     Active Substance: CEFAZOLIN SODIUM
     Indication: Prophylaxis
     Dosage: UNK
     Route: 042
     Dates: start: 20130122, end: 20130122
  11. EPINEPHRINE [Concomitant]
     Active Substance: EPINEPHRINE
     Indication: Bradycardia
     Dosage: UNK
     Route: 042
     Dates: start: 20130122
  12. ACETAMINOPHEN [Concomitant]
     Active Substance: ACETAMINOPHEN
     Indication: Product used for unknown indication
     Dosage: UNK
     Route: 042
     Dates: start: 20130122, end: 20130123

REACTIONS (1)
  - Arthritis bacterial [Recovered/Resolved]

NARRATIVE: CASE EVENT DATE: 20100708
